FAERS Safety Report 24649695 (Version 4)
Quarter: 2025Q3

REPORT INFORMATION
  Report Type: Report from Study
  Country: US (occurrence: US)
  Receive Date: 20241121
  Receipt Date: 20250805
  Transmission Date: 20251021
  Serious: Yes (Hospitalization, Other)
  Sender: ABBVIE
  Company Number: US-ABBVIE-6010097

PATIENT
  Age: 88 Year
  Sex: Male
  Weight: 83.914 kg

DRUGS (2)
  1. LUPRON DEPOT [Suspect]
     Active Substance: LEUPROLIDE ACETATE
     Indication: Product used for unknown indication
     Route: 065
     Dates: start: 202301
  2. LUPRON DEPOT [Suspect]
     Active Substance: LEUPROLIDE ACETATE
     Route: 065

REACTIONS (7)
  - Left atrial appendage closure implant [Unknown]
  - Hepatic cancer [Not Recovered/Not Resolved]
  - Post procedural complication [Unknown]
  - Procedural pain [Recovering/Resolving]
  - Medical device implantation [Recovered/Resolved]
  - Investigation abnormal [Unknown]
  - Medical device implantation [Recovering/Resolving]

NARRATIVE: CASE EVENT DATE: 20240101
